FAERS Safety Report 7433484-5 (Version None)
Quarter: 2011Q2

REPORT INFORMATION
  Report Type: 
  Country: None (occurrence: None)
  Receive Date: 20110422
  Receipt Date: 20110121
  Transmission Date: 20111010
  Serious: No
  Sender: FDA-Public Use
  Company Number: US-MUTUAL PHARMACEUTICAL COMPANY, INC.-CLCY20110008

PATIENT
  Age: 62 Year
  Sex: Male
  Weight: 99.88 kg

DRUGS (3)
  1. ALLOPURINOL [Concomitant]
     Indication: GOUT
     Route: 048
  2. COLCRYS [Suspect]
     Indication: GOUT
     Route: 048
     Dates: start: 20110112, end: 20110114
  3. INDOMETHACIN [Concomitant]
     Indication: GOUT
     Route: 048

REACTIONS (3)
  - DRUG INEFFECTIVE [None]
  - VOMITING [None]
  - DIARRHOEA [None]
